FAERS Safety Report 10864943 (Version 1)
Quarter: 2015Q1

REPORT INFORMATION
  Report Type: Report from Study
  Country: US (occurrence: US)
  Receive Date: 20150224
  Receipt Date: 20150224
  Transmission Date: 20150721
  Serious: No
  Sender: FDA-Public Use
  Company Number: US-MYLANLABS-2014S1002040

PATIENT
  Sex: Male

DRUGS (9)
  1. CLARAVIS [Suspect]
     Active Substance: ISOTRETINOIN
     Dosage: UNK
     Dates: start: 201309
  2. CLARAVIS [Suspect]
     Active Substance: ISOTRETINOIN
     Indication: OFF LABEL USE
  3. AMNESTEEM [Suspect]
     Active Substance: ISOTRETINOIN
     Dosage: UNK
  4. CLARAVIS [Suspect]
     Active Substance: ISOTRETINOIN
     Indication: SEBORRHOEIC DERMATITIS
  5. AMNESTEEM [Suspect]
     Active Substance: ISOTRETINOIN
     Indication: OFF LABEL USE
  6. AMNESTEEM [Suspect]
     Active Substance: ISOTRETINOIN
     Dosage: 60 MG,QD
     Route: 048
     Dates: end: 201401
  7. AMNESTEEM [Suspect]
     Active Substance: ISOTRETINOIN
     Indication: SEBORRHOEIC DERMATITIS
  8. AMNESTEEM [Suspect]
     Active Substance: ISOTRETINOIN
     Indication: OFF LABEL USE
  9. AMNESTEEM [Suspect]
     Active Substance: ISOTRETINOIN
     Indication: SEBORRHOEIC DERMATITIS

REACTIONS (2)
  - Seborrhoeic dermatitis [Not Recovered/Not Resolved]
  - Drug ineffective for unapproved indication [Not Recovered/Not Resolved]
